FAERS Safety Report 18018183 (Version 6)
Quarter: 2020Q4

REPORT INFORMATION
  Report Type: Report from Study
  Country: CO (occurrence: CO)
  Receive Date: 20200714
  Receipt Date: 20201207
  Transmission Date: 20210113
  Serious: Yes (Hospitalization, Other)
  Sender: FDA-Public Use
  Company Number: CO-AMGEN-COLSL2020092756

PATIENT
  Age: 55 Year
  Sex: Male

DRUGS (3)
  1. VECTIBIX [Suspect]
     Active Substance: PANITUMUMAB
     Indication: COLORECTAL CANCER METASTATIC
     Dosage: 738 MILLIGRAM, Q3WK
     Route: 042
     Dates: start: 20200513, end: 20200624
  2. VECTIBIX [Suspect]
     Active Substance: PANITUMUMAB
     Dosage: 426 MILLIGRAM, Q2WK
     Route: 042
     Dates: start: 20200806
  3. NATURAL TEARS [Concomitant]
     Active Substance: POLYVINYL ALCOHOL\POVIDONE
     Dosage: 1 DROP, BID (REPEAT IN CASE OF SENSATION OF DRY EYES)
     Dates: start: 20200608

REACTIONS (15)
  - Off label use [Unknown]
  - Hypertension [Recovering/Resolving]
  - Central venous catheterisation [Recovered/Resolved]
  - Seizure [Recovering/Resolving]
  - Asthenia [Recovering/Resolving]
  - Decreased appetite [Recovering/Resolving]
  - Radiotherapy [Recovered/Resolved]
  - Constipation [Recovered/Resolved]
  - Rash [Not Recovered/Not Resolved]
  - Syncope [Recovering/Resolving]
  - Dry skin [Not Recovered/Not Resolved]
  - Pyrexia [Recovering/Resolving]
  - Skin reaction [Recovering/Resolving]
  - Incorrect route of product administration [Unknown]
  - Blood sodium increased [Recovering/Resolving]

NARRATIVE: CASE EVENT DATE: 2020
